FAERS Safety Report 14338811 (Version 1)
Quarter: 2017Q4

REPORT INFORMATION
  Report Type: Spontaneous
  Country: US (occurrence: US)
  Receive Date: 20171229
  Receipt Date: 20171229
  Transmission Date: 20180321
  Serious: No
  Sender: FDA-Public Use
  Company Number: US-SUNOVION-2017SUN005404

PATIENT
  Sex: Female

DRUGS (2)
  1. BROVANA [Suspect]
     Active Substance: ARFORMOTEROL TARTRATE
     Indication: BRONCHITIS
     Dosage: BROVANA 15 MCG/2 ML
     Route: 055
     Dates: start: 201711, end: 20171217
  2. BROVANA [Suspect]
     Active Substance: ARFORMOTEROL TARTRATE
     Indication: ASTHMA

REACTIONS (9)
  - Dyspnoea [Unknown]
  - Musculoskeletal pain [Unknown]
  - Respiratory tract congestion [Unknown]
  - Back pain [Unknown]
  - Chest pain [Unknown]
  - Panic reaction [Unknown]
  - Rhinorrhoea [Unknown]
  - Tremor [Unknown]
  - Pain in extremity [Unknown]
